FAERS Safety Report 24166269 (Version 1)
Quarter: 2024Q3

REPORT INFORMATION
  Report Type: Report from Study
  Country: MY (occurrence: MY)
  Receive Date: 20240802
  Receipt Date: 20240802
  Transmission Date: 20241017
  Serious: Yes (Hospitalization)
  Sender: EMD SERONO INC
  Company Number: MY-Merck Healthcare KGaA-2024040775

PATIENT
  Age: 13 Year
  Sex: Male

DRUGS (2)
  1. SAIZEN [Suspect]
     Active Substance: SOMATROPIN
     Indication: Growth hormone deficiency
     Route: 058
  2. SAIZEN [Suspect]
     Active Substance: SOMATROPIN
     Indication: Growth failure

REACTIONS (2)
  - Adenoidal hypertrophy [Unknown]
  - Product storage error [Unknown]
